FAERS Safety Report 9146788 (Version 2)
Quarter: 2013Q1

REPORT INFORMATION
  Report Type: Spontaneous
  Country: KR (occurrence: KR)
  Receive Date: 20130307
  Receipt Date: 20130315
  Transmission Date: 20140127
  Serious: Yes (Hospitalization, Other)
  Sender: FDA-Public Use
  Company Number: KR-ELI_LILLY_AND_COMPANY-KR201302009767

PATIENT
  Age: 40 Year
  Sex: Male

DRUGS (4)
  1. HUMALOG LISPRO [Suspect]
     Indication: TYPE 2 DIABETES MELLITUS
     Dosage: 10 U, TID
     Route: 058
     Dates: start: 20130206
  2. HUMALOG LISPRO [Suspect]
     Dosage: 8 U, TID
  3. LANTUS [Concomitant]
     Indication: TYPE 2 DIABETES MELLITUS
     Dosage: 38 U, EACH EVENING
     Dates: start: 20130206
  4. LANTUS [Concomitant]
     Dosage: 26 U, QD

REACTIONS (1)
  - Pancreatitis chronic [Recovering/Resolving]
